FAERS Safety Report 20467689 (Version 5)
Quarter: 2022Q3

REPORT INFORMATION
  Report Type: Spontaneous
  Country: CN (occurrence: CN)
  Receive Date: 20220214
  Receipt Date: 20220826
  Transmission Date: 20221027
  Serious: Yes (Hospitalization, Other)
  Sender: FDA-Public Use
  Company Number: CN-BoehringerIngelheim-2022-BI-153353

PATIENT
  Age: 34 Year
  Sex: Male

DRUGS (5)
  1. LINAGLIPTIN [Suspect]
     Active Substance: LINAGLIPTIN
     Indication: Diabetes mellitus
     Route: 048
     Dates: start: 20220104, end: 20220105
  2. Metformin Hydrochloride Sustained Release Tablets [Concomitant]
     Indication: Diabetes mellitus
     Route: 048
     Dates: start: 20220104, end: 20220105
  3. Amlodipine and Benazepril Tablets [Concomitant]
     Indication: Product used for unknown indication
     Route: 048
  4. TIOPRONIN [Concomitant]
     Active Substance: TIOPRONIN
     Indication: Product used for unknown indication
  5. INSULIN GLARGINE [Concomitant]
     Active Substance: INSULIN GLARGINE
     Indication: Hypoglycaemia
     Dosage: AT NIGHT
     Route: 058

REACTIONS (12)
  - Hepatitis [Not Recovered/Not Resolved]
  - Pruritus [Recovering/Resolving]
  - Rash erythematous [Recovering/Resolving]
  - Drug-induced liver injury [Unknown]
  - Cholestasis [Unknown]
  - Liver function test abnormal [Recovering/Resolving]
  - Pyrexia [Recovered/Resolved]
  - Rash [Recovered/Resolved]
  - Blood glucose decreased [Recovering/Resolving]
  - Diabetes mellitus [Unknown]
  - Product quality issue [Unknown]
  - Withdrawal syndrome [Unknown]

NARRATIVE: CASE EVENT DATE: 20220101
